FAERS Safety Report 20911221 (Version 1)
Quarter: 2022Q2

REPORT INFORMATION
  Report Type: Spontaneous
  Country: GB (occurrence: GB)
  Receive Date: 20220603
  Receipt Date: 20220603
  Transmission Date: 20220721
  Serious: Yes (Life-Threatening, Hospitalization)
  Sender: FDA-Public Use
  Company Number: GB-002147023-NVSC2022GB115924

PATIENT
  Age: 14 Year
  Sex: Female
  Weight: 30 kg

DRUGS (15)
  1. MONTELUKAST [Suspect]
     Active Substance: MONTELUKAST SODIUM
     Indication: Chronic graft versus host disease
     Dosage: 5 MG
     Route: 048
     Dates: start: 201904
  2. IBRUTINIB [Suspect]
     Active Substance: IBRUTINIB
     Indication: Chronic graft versus host disease
     Dosage: 70 MG, TID
     Route: 048
     Dates: start: 20191126, end: 20200616
  3. IBRUTINIB [Suspect]
     Active Substance: IBRUTINIB
     Dosage: 70 MG, TID
     Route: 048
     Dates: start: 20200724, end: 20200727
  4. IBRUTINIB [Suspect]
     Active Substance: IBRUTINIB
     Dosage: 70 MG, TID
     Route: 048
     Dates: end: 20200719
  5. ONDANSETRON [Suspect]
     Active Substance: ONDANSETRON
     Indication: Prophylaxis of nausea and vomiting
     Dosage: 4 MG
     Route: 048
     Dates: start: 201712
  6. POSACONAZOLE [Suspect]
     Active Substance: POSACONAZOLE
     Indication: Fungal infection
     Dosage: 300 MG
     Route: 048
     Dates: start: 20190715
  7. PREDNISOLONE [Suspect]
     Active Substance: PREDNISOLONE
     Indication: Chronic graft versus host disease
     Dosage: 1.25 MG
     Route: 048
     Dates: start: 20191104
  8. ACYCLOVIR [Concomitant]
     Active Substance: ACYCLOVIR
     Indication: Viral infection
     Dosage: 800 MG
     Route: 048
     Dates: start: 2018
  9. AZITHROMYCIN [Concomitant]
     Active Substance: AZITHROMYCIN
     Indication: Bacterial infection
     Dosage: 500 MG, THREE TIMES A WEEK
     Route: 048
     Dates: start: 20191104
  10. COTRIMOXAZOLE [Concomitant]
     Active Substance: SULFAMETHOXAZOLE\TRIMETHOPRIM
     Indication: Pneumocystis jirovecii pneumonia
     Dosage: 480 MG, Q3W
     Route: 048
     Dates: start: 201907
  11. CYANOCOBALAMIN [Concomitant]
     Active Substance: CYANOCOBALAMIN
     Indication: Anaemia vitamin B12 deficiency
     Dosage: 30 MCG/ML, BID
     Route: 048
     Dates: start: 201806
  12. FLUTICASONE PROPIONATE [Concomitant]
     Active Substance: FLUTICASONE PROPIONATE
     Indication: Graft versus host disease in lung
     Dosage: 2 DOSAGE FORM
     Route: 055
     Dates: start: 201904
  13. LANSOPRAZOLE [Concomitant]
     Active Substance: LANSOPRAZOLE
     Indication: Gastric disorder
     Dosage: 30 MG
     Route: 048
     Dates: start: 20191104
  14. ACETAMINOPHEN [Concomitant]
     Active Substance: ACETAMINOPHEN
     Indication: Pain
     Dosage: 500 MG
     Route: 048
     Dates: start: 20200205
  15. VITAMIN B6 [Concomitant]
     Active Substance: PYRIDOXINE HYDROCHLORIDE
     Indication: Vitamin B complex deficiency
     Dosage: 2 DOSAGE FORM, QD
     Route: 048
     Dates: start: 201804

REACTIONS (6)
  - Febrile neutropenia [Recovered/Resolved]
  - Hypoxia [Recovered/Resolved]
  - Chest pain [Recovered/Resolved]
  - Pericardial effusion [Recovered/Resolved]
  - Pyrexia [Recovered/Resolved]
  - Pyrexia [Recovered/Resolved]

NARRATIVE: CASE EVENT DATE: 20200618
